FAERS Safety Report 23106720 (Version 2)
Quarter: 2023Q4

REPORT INFORMATION
  Report Type: Spontaneous
  Country: BR (occurrence: BR)
  Receive Date: 20231026
  Receipt Date: 20231104
  Transmission Date: 20240110
  Serious: Yes (Other)
  Sender: FDA-Public Use
  Company Number: BR-Accord-386880

PATIENT
  Age: 84 Year
  Sex: Male
  Weight: 72 kg

DRUGS (10)
  1. APIXABAN [Suspect]
     Active Substance: APIXABAN
     Indication: Product used for unknown indication
     Dosage: STRENGTH: 2.5 MG, 2 TABLETS DAILY
     Route: 048
  2. AMIODARONE [Concomitant]
     Active Substance: AMIODARONE
     Indication: Arrhythmia
     Dosage: STRENGTH: 200 MG, 2 TABLETS DAILY
     Dates: start: 20231010
  3. TRIMETAZIDINE DIHYDROCHLORIDE [Concomitant]
     Active Substance: TRIMETAZIDINE DIHYDROCHLORIDE
     Dosage: 2 TABLETS DAILY, 35 MG
  4. GLIFAGE [Concomitant]
     Active Substance: METFORMIN HYDROCHLORIDE
     Indication: Diabetes mellitus
     Dosage: 500 MG, 2 TABLETS DAILY
  5. LEVETIRACETAM [Concomitant]
     Active Substance: LEVETIRACETAM
     Indication: Seizure
     Dosage: 500 MG, 2 TABLETS DAILY
  6. DEXLANSOPRAZOLE [Concomitant]
     Active Substance: DEXLANSOPRAZOLE
     Dosage: 30 MG, 1 TABLET DAILY
  7. PANTOPRAZOLE [Concomitant]
     Active Substance: PANTOPRAZOLE
     Dosage: 40 MG, 1 TABLET DAILY
  8. SIMETHICONE (DIMETHICONE) [Concomitant]
     Active Substance: DIMETHICONE
     Indication: Flatulence
     Dosage: 125 MG,
  9. ATORVASTATIN [Concomitant]
     Active Substance: ATORVASTATIN
     Indication: Blood cholesterol increased
     Dosage: 20 MG, 1 TABLET DAILY
  10. BISOPROLOL [Concomitant]
     Active Substance: BISOPROLOL\BISOPROLOL FUMARATE
     Indication: Hypertension
     Dosage: 2.5 MG, 1 TABLET DAILY

REACTIONS (7)
  - Hallucination [Recovering/Resolving]
  - Insomnia [Recovering/Resolving]
  - Irritability [Recovering/Resolving]
  - Agitation [Recovering/Resolving]
  - Hyperhidrosis [Recovering/Resolving]
  - Visual impairment [Recovering/Resolving]
  - Restlessness [Recovering/Resolving]

NARRATIVE: CASE EVENT DATE: 20231010
